FAERS Safety Report 9473988 (Version 1)
Quarter: 2013Q3

REPORT INFORMATION
  Report Type: Spontaneous
  Country: IN (occurrence: IN)
  Receive Date: 20130823
  Receipt Date: 20130823
  Transmission Date: 20140515
  Serious: Yes (Death, Other)
  Sender: FDA-Public Use
  Company Number: IN-009507513-1308IND010449

PATIENT
  Age: 62 Year
  Sex: Male

DRUGS (1)
  1. JANUVIA [Suspect]
     Dosage: 1 DF, QD

REACTIONS (3)
  - Death [Fatal]
  - Surgery [Unknown]
  - Haematuria [Unknown]
